FAERS Safety Report 5586515-1 (Version None)
Quarter: 2007Q4

REPORT INFORMATION
  Report Type: 
  Country: None (occurrence: None)
  Receive Date: 20071205
  Receipt Date: 20070521
  Transmission Date: 20080405
  Serious: Yes (Other)
  Sender: FDA-Public Use
  Company Number: HQWYE307822MAY07

PATIENT
  Age: 16 Year
  Sex: Female
  Weight: 63.56 kg

DRUGS (7)
  1. EFFEXOR XR [Suspect]
     Dosage: SEE IMAGE
     Dates: start: 20070401, end: 20070401
  2. EFFEXOR XR [Suspect]
     Dosage: SEE IMAGE
     Dates: start: 20070401, end: 20070401
  3. EFFEXOR XR [Suspect]
     Dosage: SEE IMAGE
     Dates: start: 20070401, end: 20070401
  4. EFFEXOR XR [Suspect]
     Dosage: SEE IMAGE
     Dates: start: 20070401, end: 20070501
  5. SEROQUEL [Concomitant]
  6. TRAZODONE HCL [Concomitant]
  7. ORTHO TRI-CYCLEN (ETHINYLESTRADIOL/NORGETIMATE) [Concomitant]

REACTIONS (2)
  - SWELLING FACE [None]
  - URTICARIA [None]
